FAERS Safety Report 8960627 (Version 2)
Quarter: 2013Q1

REPORT INFORMATION
  Report Type: Spontaneous
  Country: GT (occurrence: None)
  Receive Date: 20121130
  Receipt Date: 20121231
  Transmission Date: 20140127
  Serious: Yes (Death, Other)
  Sender: FDA-Public Use
  Company Number: ENT 2012-0170

PATIENT
  Age: 95 Year
  Sex: Female
  Weight: 68 kg

DRUGS (14)
  1. COMTAN [Suspect]
     Indication: PARKINSON^S DISEASE
     Route: 048
     Dates: start: 20121022, end: 20121118
  2. SELEGILINE [Concomitant]
  3. BIPERIDEN [Concomitant]
  4. COREG [Concomitant]
  5. CLOPIDOGREL [Concomitant]
  6. APROVEL [Concomitant]
  7. MOTILIUM [Concomitant]
  8. RANITIDINE [Concomitant]
  9. LYRICA [Concomitant]
  10. SPIRIVA [Concomitant]
  11. ACETAMINOPHEN [Concomitant]
  12. SPIRONOLACTONE [Concomitant]
  13. ALPRAZOLAM [Concomitant]
  14. PLAVIX [Concomitant]

REACTIONS (4)
  - Abnormal behaviour [None]
  - Disorientation [None]
  - Aggression [None]
  - Cognitive disorder [None]
